FAERS Safety Report 6074558-3 (Version None)
Quarter: 2009Q1

REPORT INFORMATION
  Report Type: 
  Country: None (occurrence: None)
  Receive Date: 20090206
  Receipt Date: 20090123
  Transmission Date: 20090719
  Serious: Yes (Other)
  Sender: FDA-Public Use
  Company Number: 8041941

PATIENT
  Sex: Male

DRUGS (3)
  1. KEPPRA [Suspect]
     Indication: CONVULSION
     Dosage: 1500 MG TRP
     Route: 064
     Dates: end: 20080810
  2. VITAMIN TAB [Concomitant]
  3. NIFEDIPINE [Concomitant]

REACTIONS (1)
  - MATERNAL DRUGS AFFECTING FOETUS [None]
